FAERS Safety Report 13027480 (Version 3)
Quarter: 2017Q1

REPORT INFORMATION
  Report Type: Spontaneous
  Country: BR (occurrence: BR)
  Receive Date: 20161214
  Receipt Date: 20170314
  Transmission Date: 20170428
  Serious: Yes (Hospitalization, Other)
  Sender: FDA-Public Use
  Company Number: BR-BRISTOL-MYERS SQUIBB COMPANY-BMS-2016-105663

PATIENT
  Age: 73 Year
  Sex: Female
  Weight: 88 kg

DRUGS (7)
  1. ELIQUIS [Suspect]
     Active Substance: APIXABAN
     Indication: RENAL VEIN THROMBOSIS
     Dosage: 5 MG, BID
     Route: 048
     Dates: start: 201610
  2. CEPHALEXIN                         /00145501/ [Concomitant]
     Active Substance: CEPHALEXIN
     Indication: ERYTHEMA
     Dosage: 4 TAB, QD
     Route: 048
  3. TYLEX                              /00020001/ [Concomitant]
     Indication: PAIN
     Dosage: 4 TAB, QD
     Route: 048
  4. ALLOPURINOL. [Concomitant]
     Active Substance: ALLOPURINOL
     Indication: PRODUCT USED FOR UNKNOWN INDICATION
     Dosage: UNK
     Route: 065
  5. PREBICTAL [Concomitant]
     Active Substance: PREGABALIN
     Indication: PAIN
     Dosage: 2 TAB, QD
     Route: 048
  6. DIPYRONE [Concomitant]
     Active Substance: DIPYRONE
     Indication: PAIN
     Dosage: 4 TAB, QD
     Route: 048
  7. FLUOXETINE [Concomitant]
     Active Substance: FLUOXETINE HYDROCHLORIDE
     Indication: FIBROMYALGIA
     Dosage: 1 TAB, QD
     Route: 048

REACTIONS (9)
  - Blood pressure decreased [Recovered/Resolved]
  - Swelling [Recovered/Resolved]
  - Bacteraemia [Recovered/Resolved]
  - Pericardial drainage [Recovered/Resolved]
  - Erysipelas [Recovered/Resolved]
  - Musculoskeletal chest pain [Not Recovered/Not Resolved]
  - Vomiting [Recovered/Resolved]
  - Spinal pain [Not Recovered/Not Resolved]
  - Product use issue [Unknown]

NARRATIVE: CASE EVENT DATE: 201611
